FAERS Safety Report 19034371 (Version 1)
Quarter: 2021Q1

REPORT INFORMATION
  Report Type: Spontaneous
  Country: US (occurrence: US)
  Receive Date: 20210319
  Receipt Date: 20210319
  Transmission Date: 20210420
  Serious: Yes (Death)
  Sender: FDA-Public Use
  Company Number: US-ATHENEX PHARMACEUTICAL SOLUTION-2108231

PATIENT
  Age: 79 Year
  Sex: Female
  Weight: 88.7 kg

DRUGS (1)
  1. NOREPINEPHRINE INJECTION IN 0.9%SOIUM CHLORIDE [Suspect]
     Active Substance: NOREPINEPHRINE
     Indication: SHOCK
     Route: 041
     Dates: start: 20210313, end: 20210314

REACTIONS (1)
  - Drug ineffective [Fatal]

NARRATIVE: CASE EVENT DATE: 20210313
